FAERS Safety Report 18210558 (Version 3)
Quarter: 2023Q1

REPORT INFORMATION
  Report Type: Spontaneous
  Country: BR (occurrence: BR)
  Receive Date: 20200829
  Receipt Date: 20230213
  Transmission Date: 20230418
  Serious: Yes (Death)
  Sender: FDA-Public Use
  Company Number: None

PATIENT
  Sex: Male
  Weight: 2.25 kg

DRUGS (4)
  1. AMLODIPINE BESYLATE [Suspect]
     Active Substance: AMLODIPINE BESYLATE
     Indication: Foetal exposure during pregnancy
     Dosage: MATERNAL EXPOSURE DURING PREGNANCY: 10 MG, Q12H
     Route: 064
     Dates: start: 20200615
  2. AMLODIPINE BESYLATE [Suspect]
     Active Substance: AMLODIPINE BESYLATE
     Dosage: MATERNAL EXPOSURE DURING PREGNANCY: 15 MG, Q8H
     Route: 064
     Dates: end: 20200630
  3. VITAMINS [Concomitant]
     Active Substance: VITAMINS
     Indication: Foetal exposure during pregnancy
     Dosage: MATERNAL EXPOSURE DURING PREGNANCY: UNKNOWN DOSE, QD
     Route: 064
     Dates: start: 20191212, end: 20200629
  4. CALTRATE [Concomitant]
     Active Substance: CALCIUM CARBONATE
     Indication: Foetal exposure during pregnancy
     Dosage: MATERNAL EXPOSURE DURING PREGNANCY: UNKNOWN DOSE, QD
     Route: 064
     Dates: start: 20200123, end: 20200629

REACTIONS (3)
  - Stillbirth [Fatal]
  - Foetal distress syndrome [Fatal]
  - Foetal exposure during pregnancy [Unknown]

NARRATIVE: CASE EVENT DATE: 20200630
